FAERS Safety Report 17234572 (Version 1)
Quarter: 2020Q1

REPORT INFORMATION
  Report Type: Spontaneous
  Country: US (occurrence: US)
  Receive Date: 20200106
  Receipt Date: 20200106
  Transmission Date: 20200409
  Serious: No
  Sender: FDA-Public Use
  Company Number: US-UCBSA-2014019119

PATIENT
  Sex: Female

DRUGS (2)
  1. MERCAPTOPURINE. [Interacting]
     Active Substance: MERCAPTOPURINE
     Indication: PRODUCT USED FOR UNKNOWN INDICATION
     Dosage: UNK
  2. CIMZIA [Suspect]
     Active Substance: CERTOLIZUMAB PEGOL
     Indication: PRODUCT USED FOR UNKNOWN INDICATION
     Dosage: BEEN ON CIMZIA FOR ALMOST 3.5 YEARS NOW

REACTIONS (5)
  - Pain [Unknown]
  - Nausea [Unknown]
  - Eczema [Unknown]
  - Crohn^s disease [Unknown]
  - Drug interaction [Unknown]
